FAERS Safety Report 14719258 (Version 2)
Quarter: 2018Q2

REPORT INFORMATION
  Report Type: Spontaneous
  Country: PR (occurrence: US)
  Receive Date: 20180405
  Receipt Date: 20180416
  Transmission Date: 20180711
  Serious: Yes (Hospitalization)
  Sender: FDA-Public Use
  Company Number: PR-JNJFOC-20180333522

PATIENT
  Age: 76 Year
  Sex: Male

DRUGS (2)
  1. XARELTO [Suspect]
     Active Substance: RIVAROXABAN
     Indication: HIP ARTHROPLASTY
     Route: 048
     Dates: start: 20151017, end: 20151102
  2. XARELTO [Suspect]
     Active Substance: RIVAROXABAN
     Indication: THROMBOSIS PROPHYLAXIS
     Route: 048
     Dates: start: 20151017, end: 20151102

REACTIONS (1)
  - Melaena [Recovering/Resolving]

NARRATIVE: CASE EVENT DATE: 20151023
